FAERS Safety Report 8901565 (Version 1)
Quarter: 2013Q1

REPORT INFORMATION
  Report Type: Spontaneous
  Country: US (occurrence: None)
  Receive Date: 20121108
  Receipt Date: 20121108
  Transmission Date: 20140127
  Serious: Yes (Hospitalization)
  Sender: FDA-Public Use
  Company Number: None

PATIENT
  Age: 55 Year
  Sex: Male
  Weight: 34.47 kg

DRUGS (2)
  1. CETUXIMAB [Suspect]
     Indication: LARYNGEAL CANCER
     Route: 042
     Dates: start: 20120822, end: 20121106
  2. CARBOPLATIN [Suspect]
     Dosage: 1.5 AUC IV WEEKLY
     Dates: start: 20120822, end: 20121023

REACTIONS (3)
  - Diarrhoea [None]
  - Hypokalaemia [None]
  - Hypomagnesaemia [None]
